FAERS Safety Report 25068137 (Version 3)
Quarter: 2025Q2

REPORT INFORMATION
  Report Type: Spontaneous
  Country: US (occurrence: US)
  Receive Date: 20250312
  Receipt Date: 20250505
  Transmission Date: 20250717
  Serious: No
  Sender: PFIZER
  Company Number: US-PFIZER INC-202500051628

PATIENT
  Age: 62 Year
  Sex: Female
  Weight: 45.36 kg

DRUGS (1)
  1. ZIRABEV [Suspect]
     Active Substance: BEVACIZUMAB-BVZR
     Indication: Ovarian cancer
     Dosage: 700 MG, EVERY 3 WEEKS (MAINTENANCE DOSE)
     Dates: start: 20250225

REACTIONS (6)
  - Electric shock sensation [Unknown]
  - Lymphadenopathy [Not Recovered/Not Resolved]
  - Back pain [Recovering/Resolving]
  - Carbohydrate antigen 125 increased [Unknown]
  - Fatigue [Unknown]
  - Bone pain [Unknown]

NARRATIVE: CASE EVENT DATE: 20250224
